FAERS Safety Report 7069409-4 (Version None)
Quarter: 2010Q4

REPORT INFORMATION
  Report Type: 
  Country: None (occurrence: None)
  Receive Date: 20101028
  Receipt Date: 20101019
  Transmission Date: 20110411
  Serious: Yes (Death)
  Sender: FDA-Public Use
  Company Number: US-AMGEN-KDC441639

PATIENT

DRUGS (8)
  1. ETANERCEPT [Suspect]
     Indication: PSORIASIS
     Dosage: UNK UNK, UNK
     Route: 058
     Dates: start: 20070628, end: 20091013
  2. ACETAMINOPHEN [Concomitant]
     Dosage: 1000 MG, PRN
  3. SINEMET [Concomitant]
     Dosage: UNK UNK, BID
  4. EXELON [Concomitant]
  5. RITALIN [Concomitant]
  6. OMEPRAZOLE [Concomitant]
     Dosage: 20 MG, QD
  7. SENNALAX                           /00571901/ [Concomitant]
  8. SIMVASTATIN [Concomitant]
     Dosage: 20 MG, QD

REACTIONS (1)
  - CARDIAC FAILURE [None]
